FAERS Safety Report 16558526 (Version 1)
Quarter: 2019Q3

REPORT INFORMATION
  Report Type: Report from Study
  Country: US (occurrence: US)
  Receive Date: 20190711
  Receipt Date: 20190711
  Transmission Date: 20191004
  Serious: Yes (Hospitalization, Other)
  Sender: FDA-Public Use
  Company Number: US-GILEAD-2019-0417710

PATIENT
  Age: 78 Year
  Sex: Female

DRUGS (16)
  1. PRAVASTATIN. [Concomitant]
     Active Substance: PRAVASTATIN
  2. RABEPRAZOLE [Concomitant]
     Active Substance: RABEPRAZOLE
  3. RANEXA [Concomitant]
     Active Substance: RANOLAZINE
  4. AMBRISENTAN [Suspect]
     Active Substance: AMBRISENTAN
     Indication: PULMONARY ARTERIAL HYPERTENSION
     Dosage: 10 MG, QD
     Route: 065
     Dates: start: 20120314
  5. MIDODRINE [Concomitant]
     Active Substance: MIDODRINE
  6. ADVAIR HFA [Concomitant]
     Active Substance: FLUTICASONE PROPIONATE\SALMETEROL XINAFOATE
  7. FUROSEMIDE. [Concomitant]
     Active Substance: FUROSEMIDE
  8. GLIPIZIDE. [Concomitant]
     Active Substance: GLIPIZIDE
  9. HYDROCODONE BITARTRATE AND ACETAMINOPHEN [Concomitant]
     Active Substance: ACETAMINOPHEN\HYDROCODONE BITARTRATE
  10. TOPIRAMATE. [Concomitant]
     Active Substance: TOPIRAMATE
  11. ADEMPAS [Concomitant]
     Active Substance: RIOCIGUAT
  12. CARVEDILOL. [Concomitant]
     Active Substance: CARVEDILOL
  13. GABAPENTIN. [Concomitant]
     Active Substance: GABAPENTIN
  14. LINZESS [Concomitant]
     Active Substance: LINACLOTIDE
  15. LEVOTHYROXINE. [Concomitant]
     Active Substance: LEVOTHYROXINE
  16. WARFARIN [Concomitant]
     Active Substance: WARFARIN

REACTIONS (2)
  - Cardiac failure congestive [Unknown]
  - Intentional dose omission [Unknown]
